FAERS Safety Report 6382494-8 (Version None)
Quarter: 2009Q3

REPORT INFORMATION
  Report Type: 
  Country: None (occurrence: None)
  Receive Date: 20090930
  Receipt Date: 20090918
  Transmission Date: 20100115
  Serious: Yes (Hospitalization)
  Sender: FDA-Public Use
  Company Number: JP-SANOFI-SYNTHELABO-A01200909454

PATIENT
  Sex: Female
  Weight: 60 kg

DRUGS (6)
  1. ROHYPNOL [Concomitant]
     Indication: DEPRESSION
     Dosage: UNK
     Route: 048
     Dates: start: 20081101
  2. LUVOX [Concomitant]
     Indication: DEPRESSION
     Dosage: UNK
     Route: 048
     Dates: start: 20081101
  3. DEPAS [Suspect]
     Indication: DEPRESSION
     Route: 048
     Dates: start: 20081101
  4. DOGMATYL [Suspect]
     Indication: DEPRESSION
     Route: 048
     Dates: start: 20081101
  5. MYSLEE [Suspect]
     Indication: DEPRESSION
     Route: 048
     Dates: start: 20081101
  6. TETRAMIDE [Concomitant]
     Indication: DEPRESSION
     Dosage: UNK
     Route: 048
     Dates: start: 20081101

REACTIONS (1)
  - LIVER DISORDER [None]
